FAERS Safety Report 4975587-0 (Version None)
Quarter: 2006Q2

REPORT INFORMATION
  Report Type: 
  Country: None (occurrence: None)
  Receive Date: 20060411
  Receipt Date: 20060330
  Transmission Date: 20061013
  Serious: Yes (Life-Threatening, Hospitalization)
  Sender: FDA-Public Use
  Company Number: HQWYE150323DEC05

PATIENT
  Age: 38 Year
  Sex: Female

DRUGS (1)
  1. EFFEXOR XR [Suspect]
     Indication: POST-TRAUMATIC STRESS DISORDER
     Dosage: 225 MG 21X PER 1 DAY, ORAL
     Route: 048
     Dates: start: 20041201, end: 20051101

REACTIONS (1)
  - AUTOIMMUNE HEPATITIS [None]
